FAERS Safety Report 7522019-4 (Version None)
Quarter: 2011Q2

REPORT INFORMATION
  Report Type: 
  Country: None (occurrence: None)
  Receive Date: 20110603
  Receipt Date: 20110527
  Transmission Date: 20111010
  Serious: Yes (Death)
  Sender: FDA-Public Use
  Company Number: PHHY2011CH22180

PATIENT
  Sex: Female
  Weight: 64 kg

DRUGS (8)
  1. ONBREZ [Suspect]
     Indication: CHRONIC OBSTRUCTIVE PULMONARY DISEASE
     Dosage: 150 UG, DAILY
  2. RASILEZ [Suspect]
     Dosage: 150 MG, DAILY
     Dates: start: 20100101
  3. SYMBICORT [Concomitant]
     Indication: CHRONIC OBSTRUCTIVE PULMONARY DISEASE
  4. AERIUS [Concomitant]
  5. ONBREZ [Suspect]
     Indication: ASTHMA
     Dosage: 150 UG, DAILY
     Dates: start: 20101024
  6. SERETIDE [Concomitant]
     Indication: CHRONIC OBSTRUCTIVE PULMONARY DISEASE
  7. TYSABRI [Concomitant]
     Dosage: 300 MG, DAILY
     Dates: start: 20091102
  8. LYRICA [Concomitant]
     Dosage: 50 MG, DAILY
     Dates: start: 20100101

REACTIONS (4)
  - LUNG DISORDER [None]
  - ASTHMATIC CRISIS [None]
  - EMPHYSEMA [None]
  - PLEURAL ADHESION [None]
